FAERS Safety Report 9862158 (Version 3)
Quarter: 2017Q2

REPORT INFORMATION
  Report Type: Report from Study
  Country: US (occurrence: US)
  Receive Date: 20140203
  Receipt Date: 20170524
  Transmission Date: 20170830
  Serious: No
  Sender: FDA-Public Use
  Company Number: US-BEH-2014040405

PATIENT
  Age: 16 Year
  Sex: Female
  Weight: 70.76 kg

DRUGS (3)
  1. BERINERT [Suspect]
     Active Substance: HUMAN C1-ESTERASE INHIBITOR
     Indication: HEREDITARY ANGIOEDEMA
     Route: 042
     Dates: start: 20101212
  2. FIRAZYR [Suspect]
     Active Substance: ICATIBANT ACETATE
     Indication: HEREDITARY ANGIOEDEMA
     Dosage: AT LEAST 1-2 TIMES/WEEK
     Route: 058
     Dates: start: 20120828
  3. BERINERT [Suspect]
     Active Substance: HUMAN C1-ESTERASE INHIBITOR
     Indication: PROPHYLAXIS
     Route: 042

REACTIONS (1)
  - Exposure during pregnancy [Recovered/Resolved]
